FAERS Safety Report 19988643 (Version 2)
Quarter: 2021Q4

REPORT INFORMATION
  Report Type: Spontaneous
  Country: US (occurrence: US)
  Receive Date: 20211024
  Receipt Date: 20211130
  Transmission Date: 20220303
  Serious: No
  Sender: FDA-Public Use
  Company Number: US-JNJFOC-20211039973

PATIENT
  Age: 24 Year
  Sex: Female

DRUGS (10)
  1. SPRAVATO [Suspect]
     Active Substance: ESKETAMINE
     Indication: Major depression
     Route: 045
     Dates: start: 20210119, end: 20211022
  2. FOLBIC [Concomitant]
     Active Substance: CYANOCOBALAMIN\FOLIC ACID\PYRIDOXINE
     Dosage: DOSE: 2.5-25-2MG
     Route: 048
     Dates: start: 20211004
  3. ONDANSETRON [Concomitant]
     Active Substance: ONDANSETRON
     Dosage: EVERY 4-6 HOURS AS NEEDED
     Route: 048
     Dates: start: 20211026
  4. CHOLECALCIFEROL [Concomitant]
     Active Substance: CHOLECALCIFEROL
     Dosage: DOSE:1250 MCG
     Route: 048
     Dates: start: 20210701
  5. IBUPROFEN [Concomitant]
     Active Substance: IBUPROFEN
     Route: 048
     Dates: start: 20210524
  6. METOPROLOL TARTRATE [Concomitant]
     Active Substance: METOPROLOL TARTRATE
     Route: 048
     Dates: start: 20211026
  7. SINGULAIR [Concomitant]
     Active Substance: MONTELUKAST SODIUM
     Route: 048
     Dates: start: 20210524
  8. TRINTELLIX [Concomitant]
     Active Substance: VORTIOXETINE HYDROBROMIDE
     Route: 048
     Dates: start: 20210818
  9. ZOLPIDEM [Concomitant]
     Active Substance: ZOLPIDEM TARTRATE
     Route: 048
     Dates: start: 20210524
  10. ZYPREXA [Concomitant]
     Active Substance: OLANZAPINE
     Dosage: START 1 TAB EACH NIGHT, AFTER 3 DAYS CAN INCREASE TO UP TO 2 TABS NIGHTLY, AFTER 3 MORE DAYS CAN INC
     Route: 048
     Dates: start: 20211026

REACTIONS (4)
  - Malaise [Unknown]
  - Product dose omission issue [Unknown]
  - Nausea [Recovered/Resolved]
  - Vomiting [Recovered/Resolved]

NARRATIVE: CASE EVENT DATE: 20211019
